FAERS Safety Report 16030992 (Version 5)
Quarter: 2020Q2

REPORT INFORMATION
  Report Type: Spontaneous
  Country: US (occurrence: US)
  Receive Date: 20190304
  Receipt Date: 20200507
  Transmission Date: 20200713
  Serious: Yes (Other)
  Sender: FDA-Public Use
  Company Number: US-PFIZER INC-2019080120

PATIENT
  Age: 56 Year
  Sex: Female
  Weight: 55.34 kg

DRUGS (9)
  1. PROGESTERONE. [Suspect]
     Active Substance: PROGESTERONE
     Indication: DYSURIA
     Dosage: 100 MG, 1X/DAY (AT BED TIME)
     Route: 048
  2. PROGESTERONE. [Suspect]
     Active Substance: PROGESTERONE
     Indication: VULVOVAGINAL DRYNESS
     Dosage: 10 MG, 1X/DAY
     Route: 048
     Dates: start: 201806
  3. PROGESTERONE. [Suspect]
     Active Substance: PROGESTERONE
     Indication: DYSPAREUNIA
  4. PROGESTERONE. [Suspect]
     Active Substance: PROGESTERONE
     Indication: HORMONE REPLACEMENT THERAPY
  5. ESTRING [Suspect]
     Active Substance: ESTRADIOL
     Indication: DYSURIA
     Dosage: 2 MG, EVERY 3 MONTHS
     Route: 067
     Dates: start: 201807, end: 20190119
  6. IMVEXXY [Concomitant]
     Active Substance: ESTRADIOL
     Dosage: 10 UG, 2X/WEEK
     Route: 054
     Dates: start: 201901
  7. ESTRING [Suspect]
     Active Substance: ESTRADIOL
     Indication: VULVOVAGINAL DRYNESS
  8. ESTRING [Suspect]
     Active Substance: ESTRADIOL
     Indication: DYSPAREUNIA
     Dosage: 1 VAGINALLY FOR 3 MONTHS
     Route: 067
     Dates: start: 20200218
  9. ESTRING [Suspect]
     Active Substance: ESTRADIOL
     Indication: HORMONE REPLACEMENT THERAPY

REACTIONS (6)
  - Procedural pain [Unknown]
  - Constipation [Unknown]
  - Product physical issue [Unknown]
  - Umbilical hernia [Unknown]
  - Poor quality product administered [Unknown]
  - Pollakiuria [Unknown]

NARRATIVE: CASE EVENT DATE: 2019
